FAERS Safety Report 18849705 (Version 1)
Quarter: 2021Q1

REPORT INFORMATION
  Report Type: Spontaneous
  Country: DE (occurrence: DE)
  Receive Date: 20210205
  Receipt Date: 20210205
  Transmission Date: 20210420
  Serious: Yes (Other)
  Sender: FDA-Public Use
  Company Number: DE-AMGEN-DEUSP2021017353

PATIENT
  Age: 77 Year
  Sex: Male
  Weight: 90 kg

DRUGS (5)
  1. CANDESARTAN 1A PHARMA [Concomitant]
     Active Substance: CANDESARTAN CILEXETIL
     Indication: HYPERTENSION
     Dosage: UNK UNK, QD (1?0?0?0)
     Route: 048
     Dates: start: 20150717
  2. SIMVASTATIN 1A PHARMA [Concomitant]
     Active Substance: SIMVASTATIN
     Indication: HYPERCHOLESTEROLAEMIA
     Dosage: UNK, QD (0?0?0?1/2)
     Route: 048
     Dates: start: 20150717
  3. BEVACIZUMAB. [Suspect]
     Active Substance: BEVACIZUMAB
     Indication: PRODUCT USED FOR UNKNOWN INDICATION
     Dosage: 1.25 MG (21 INJECTIONS RIGHT EYE)
     Route: 031
     Dates: start: 20200807
  4. BEOVU [Suspect]
     Active Substance: BROLUCIZUMAB-DBLL
     Indication: NEOVASCULAR AGE-RELATED MACULAR DEGENERATION
     Dosage: UNK, ONCE/SINGLE (1X)
     Route: 031
     Dates: start: 20200821
  5. LERCANIDIPIN?HCL AL [Concomitant]
     Indication: HYPERTENSION
     Dosage: UNK UNK, BID (1/2?0?0?1/2)
     Route: 048
     Dates: start: 20150717

REACTIONS (9)
  - Eye inflammation [Recovered/Resolved]
  - Retinal haemorrhage [Recovered/Resolved]
  - Photophobia [Recovered/Resolved]
  - Headache [Recovered/Resolved]
  - Anterior chamber inflammation [Unknown]
  - Eye pain [Recovered/Resolved]
  - Visual acuity reduced [Recovered/Resolved]
  - Ocular hyperaemia [Recovered/Resolved]
  - Vitreous floaters [Recovered/Resolved]

NARRATIVE: CASE EVENT DATE: 20200828
